FAERS Safety Report 4798096-0 (Version None)
Quarter: 2005Q4

REPORT INFORMATION
  Report Type: 
  Country: None (occurrence: None)
  Receive Date: 20051006
  Receipt Date: 20051006
  Transmission Date: 20060501
  Serious: No
  Sender: FDA-Public Use
  Company Number: None

PATIENT
  Age: 63 Year
  Sex: Female

DRUGS (6)
  1. CETUXIMAB [Suspect]
     Indication: COLON CANCER
     Dosage: 552MG IV OVER 2 HRS
     Route: 042
     Dates: start: 20040623
  2. LEUCOVORIN [Concomitant]
  3. PEPCID [Concomitant]
  4. TYLENOL (CAPLET) [Concomitant]
  5. FENTANYL [Concomitant]
  6. COMPAZINE [Concomitant]

REACTIONS (6)
  - ASPIRATION [None]
  - BLOOD PRESSURE INCREASED [None]
  - INFUSION RELATED REACTION [None]
  - INFUSION SITE ERYTHEMA [None]
  - OXYGEN SATURATION DECREASED [None]
  - VOMITING [None]
